FAERS Safety Report 19349945 (Version 1)
Quarter: 2021Q2

REPORT INFORMATION
  Report Type: Spontaneous
  Country: US (occurrence: US)
  Receive Date: 20210529
  Receipt Date: 20210529
  Transmission Date: 20210717
  Serious: Yes (Hospitalization)
  Sender: FDA-Public Use
  Company Number: None

PATIENT
  Age: 76 Year
  Sex: Female
  Weight: 112.6 kg

DRUGS (2)
  1. PACLITAXEL PROTEIN?BOUND PARTICLES (ALBUMIN?BOUND) [Suspect]
     Active Substance: PACLITAXEL
     Dates: end: 20210512
  2. GEMCITABINE HYDROCHLORIDE. [Suspect]
     Active Substance: GEMCITABINE HYDROCHLORIDE
     Dates: end: 20210512

REACTIONS (8)
  - Osteomyelitis [None]
  - Pancreatic disorder [None]
  - Sepsis [None]
  - Diabetic foot [None]
  - Hepatic lesion [None]
  - Cholangitis [None]
  - Cellulitis [None]
  - Neoplasm progression [None]

NARRATIVE: CASE EVENT DATE: 20210519
